FAERS Safety Report 13777982 (Version 1)
Quarter: 2017Q3

REPORT INFORMATION
  Report Type: Spontaneous
  Country: AU (occurrence: AU)
  Receive Date: 20170721
  Receipt Date: 20170721
  Transmission Date: 20171127
  Serious: Yes (Other)
  Sender: FDA-Public Use
  Company Number: AU-PFIZER INC-2017313526

PATIENT
  Age: 59 Year
  Sex: Female

DRUGS (4)
  1. CYCLOPHOSPHAMIDE. [Concomitant]
     Active Substance: CYCLOPHOSPHAMIDE
     Indication: LYMPHOCYTIC LYMPHOMA
  2. VINCRISTINE [Concomitant]
     Active Substance: VINCRISTINE
     Indication: LYMPHOCYTIC LYMPHOMA
     Dosage: UNK
  3. PREDNISOLONE. [Concomitant]
     Active Substance: PREDNISOLONE
     Indication: LYMPHOCYTIC LYMPHOMA
     Dosage: UNK
  4. BLEOMYCIN SULFATE [Suspect]
     Active Substance: BLEOMYCIN SULFATE
     Dosage: 5 MG, UNK, (TEST DOSE)
     Route: 030

REACTIONS (1)
  - Hyperpyrexia [Recovered/Resolved]
